FAERS Safety Report 9638581 (Version 2)
Quarter: 2013Q4

REPORT INFORMATION
  Report Type: Spontaneous
  Country: AU (occurrence: AU)
  Receive Date: 20131022
  Receipt Date: 20131022
  Transmission Date: 20140711
  Serious: Yes (Other)
  Sender: FDA-Public Use
  Company Number: AU-BRISTOL-MYERS SQUIBB COMPANY-16034886

PATIENT
  Age: 40 Year
  Sex: Female

DRUGS (2)
  1. ABILIFY TABS 20 MG [Suspect]
     Indication: SCHIZOPHRENIA
  2. LEXAPRO [Suspect]
     Indication: DEPRESSION

REACTIONS (2)
  - Abortion spontaneous [Unknown]
  - Pregnancy [Unknown]
